FAERS Safety Report 15121933 (Version 1)
Quarter: 2018Q3

REPORT INFORMATION
  Report Type: Spontaneous
  Country: FR (occurrence: FR)
  Receive Date: 20180709
  Receipt Date: 20180709
  Transmission Date: 20181010
  Serious: Yes (Hospitalization)
  Sender: FDA-Public Use
  Company Number: FR-PFIZER INC-2018267695

PATIENT
  Age: 63 Year
  Sex: Male
  Weight: 97 kg

DRUGS (4)
  1. IZALGI [Concomitant]
     Active Substance: ACETAMINOPHEN\OPIUM
     Dosage: 1000 MG, 1X/DAY
     Route: 048
  2. PARACETAMOL [Concomitant]
     Active Substance: ACETAMINOPHEN
     Dosage: 1 G, UNK
     Route: 048
  3. LINEZOLID. [Suspect]
     Active Substance: LINEZOLID
     Indication: POST PROCEDURAL INFECTION
     Dosage: 1200 MG, 1X/DAY
     Route: 048
     Dates: start: 20180323, end: 20180419
  4. FLUINDIONE [Concomitant]
     Active Substance: FLUINDIONE
     Indication: VENOUS THROMBOSIS
     Dosage: 15 MG, 1X/DAY
     Route: 048
     Dates: start: 20180301

REACTIONS (1)
  - Confusional state [Recovered/Resolved]

NARRATIVE: CASE EVENT DATE: 20180416
